FAERS Safety Report 7898903-9 (Version None)
Quarter: 2011Q4

REPORT INFORMATION
  Report Type: 
  Country: None (occurrence: None)
  Receive Date: 20111107
  Receipt Date: 20110825
  Transmission Date: 20120403
  Serious: Yes (Death, Congenital Anomaly)
  Sender: FDA-Public Use
  Company Number: FR-ASTRAZENECA-2011SE66358

PATIENT
  Age: 0 Week

DRUGS (1)
  1. CRESTOR [Suspect]
     Indication: DYSLIPIDAEMIA
     Route: 064
     Dates: start: 20080101, end: 20080101

REACTIONS (3)
  - FOETAL MALFORMATION [None]
  - FOETAL EXPOSURE DURING PREGNANCY [None]
  - ABORTION INDUCED [None]
